FAERS Safety Report 16481290 (Version 9)
Quarter: 2020Q1

REPORT INFORMATION
  Report Type: Report from Study
  Country: None (occurrence: IE)
  Receive Date: 20190626
  Receipt Date: 20200116
  Transmission Date: 20200409
  Serious: Yes (Hospitalization, Other)
  Sender: FDA-Public Use
  Company Number: IE-ABBVIE-18K-229-2413729-00

PATIENT
  Sex: Male

DRUGS (3)
  1. HUMIRA [Suspect]
     Active Substance: ADALIMUMAB
     Indication: PSORIASIS
     Route: 058
     Dates: start: 20160805, end: 20190628
  2. HUMIRA [Suspect]
     Active Substance: ADALIMUMAB
     Route: 058
     Dates: start: 2019
  3. CALCIUM [Concomitant]
     Active Substance: CALCIUM
     Indication: PRODUCT USED FOR UNKNOWN INDICATION

REACTIONS (9)
  - Inguinal hernia [Recovered/Resolved]
  - Localised infection [Recovered/Resolved with Sequelae]
  - Cardiac murmur [Recovering/Resolving]
  - Hernia [Unknown]
  - Anaesthetic complication [Recovering/Resolving]
  - Obstructive airways disorder [Recovering/Resolving]
  - Hospitalisation [Unknown]
  - Procedural pain [Recovering/Resolving]
  - Pain in extremity [Unknown]

NARRATIVE: CASE EVENT DATE: 2019
